FAERS Safety Report 19363313 (Version 2)
Quarter: 2021Q2

REPORT INFORMATION
  Report Type: Report from Study
  Country: CA (occurrence: CA)
  Receive Date: 20210602
  Receipt Date: 20210608
  Transmission Date: 20210717
  Serious: Yes (Hospitalization)
  Sender: FDA-Public Use
  Company Number: CA-JNJFOC-20210450616

PATIENT
  Age: 82 Year
  Sex: Female

DRUGS (22)
  1. SELEXIPAG [Suspect]
     Active Substance: SELEXIPAG
     Indication: PULMONARY ARTERIAL HYPERTENSION
     Dosage: 400 MCG IN THE AM AND 600 MCG AT PM
     Route: 048
     Dates: start: 20210413
  2. TRACLEER [Concomitant]
     Active Substance: BOSENTAN
  3. BUPROPION. [Concomitant]
     Active Substance: BUPROPION
  4. KAMPFER [Concomitant]
  5. BIOTINE [BIOTIN] [Concomitant]
     Active Substance: BIOTIN
  6. ATENOLOL. [Concomitant]
     Active Substance: ATENOLOL
  7. OMNARIS [Concomitant]
     Active Substance: CICLESONIDE
  8. LORAZEPAM. [Concomitant]
     Active Substance: LORAZEPAM
  9. VITAMIN D [ERGOCALCIFEROL] [Concomitant]
     Active Substance: ERGOCALCIFEROL
  10. ATORVASTATIN [Concomitant]
     Active Substance: ATORVASTATIN
  11. JANUMET [Concomitant]
     Active Substance: METFORMIN HYDROCHLORIDE\SITAGLIPTIN PHOSPHATE
  12. SPIRONOLACTONE. [Concomitant]
     Active Substance: SPIRONOLACTONE
  13. ASA [Concomitant]
     Active Substance: ASPIRIN
  14. SELEXIPAG [Suspect]
     Active Substance: SELEXIPAG
     Route: 048
     Dates: start: 20210421
  15. ADCIRCA [Concomitant]
     Active Substance: TADALAFIL
  16. MAVIK [Concomitant]
     Active Substance: TRANDOLAPRIL
  17. BOSENTAN. [Suspect]
     Active Substance: BOSENTAN
     Indication: PULMONARY ARTERIAL HYPERTENSION
     Route: 048
     Dates: start: 20171204
  18. EZETIMIBE. [Concomitant]
     Active Substance: EZETIMIBE
  19. SELEXIPAG [Suspect]
     Active Substance: SELEXIPAG
     Route: 048
  20. FUROSEMIDE. [Concomitant]
     Active Substance: FUROSEMIDE
  21. PANTOPRAZOLE [Concomitant]
     Active Substance: PANTOPRAZOLE
  22. JAMP FERROUS SULFATE [Concomitant]
     Active Substance: FERROUS SULFATE

REACTIONS (4)
  - Cardiac failure congestive [Recovering/Resolving]
  - Skin discolouration [Not Recovered/Not Resolved]
  - Headache [Not Recovered/Not Resolved]
  - Diarrhoea [Not Recovered/Not Resolved]

NARRATIVE: CASE EVENT DATE: 2021
